FAERS Safety Report 8793441 (Version 2)
Quarter: 2014Q2

REPORT INFORMATION
  Report Type: Spontaneous
  Country: AU (occurrence: AU)
  Receive Date: 20120918
  Receipt Date: 20131213
  Transmission Date: 20141212
  Serious: Yes (Other)
  Sender: FDA-Public Use
  Company Number: PHHY2012AU080147

PATIENT
  Age: 51 Year
  Sex: Female

DRUGS (4)
  1. CLOZARIL [Suspect]
     Route: 048
  2. ATENOLOL [Concomitant]
  3. TIOTROPIUM [Concomitant]
  4. SERETIDE EVOHALER [Concomitant]

REACTIONS (5)
  - Schizophrenia [Unknown]
  - Delusion [Unknown]
  - Paranoia [Unknown]
  - Impaired self-care [Unknown]
  - Drug level below therapeutic [Unknown]
